FAERS Safety Report 19006405 (Version 2)
Quarter: 2021Q2

REPORT INFORMATION
  Report Type: Spontaneous
  Country: US (occurrence: US)
  Receive Date: 20210315
  Receipt Date: 20210406
  Transmission Date: 20210717
  Serious: Yes (Hospitalization)
  Sender: FDA-Public Use
  Company Number: US-UROGEN PHARMA LTD.-2021-UGN-000009

PATIENT
  Age: 71 Year
  Sex: Female

DRUGS (4)
  1. JELMYTO [Suspect]
     Active Substance: MITOMYCIN
     Dosage: 15 CC (INSTILLATION), QW
     Dates: start: 20210216, end: 20210216
  2. JELMYTO [Suspect]
     Active Substance: MITOMYCIN
     Dosage: 15 CC (INSTILLATION), QW
     Dates: start: 20210223, end: 20210223
  3. JELMYTO [Suspect]
     Active Substance: MITOMYCIN
     Dosage: 15 CC (INSTILLATION), QW
     Dates: start: 20210209, end: 20210209
  4. JELMYTO [Suspect]
     Active Substance: MITOMYCIN
     Indication: TRANSITIONAL CELL CANCER OF THE RENAL PELVIS AND URETER
     Dosage: 15 CC VIA (INSTILLATION), QW
     Dates: start: 20210202, end: 20210202

REACTIONS (4)
  - Micturition urgency [Unknown]
  - Bacteraemia [Recovered/Resolved]
  - Renal pain [Recovered/Resolved]
  - Pollakiuria [Unknown]

NARRATIVE: CASE EVENT DATE: 20210223
